FAERS Safety Report 6186474-7 (Version None)
Quarter: 2009Q2

REPORT INFORMATION
  Report Type: 
  Country: None (occurrence: None)
  Receive Date: 20090512
  Receipt Date: 20090508
  Transmission Date: 20091009
  Serious: Yes (Hospitalization)
  Sender: FDA-Public Use
  Company Number: JP-SP-2008-01764

PATIENT
  Age: 66 Year
  Sex: Male

DRUGS (1)
  1. IMMUCYST [Suspect]
     Indication: BLADDER CANCER
     Route: 065
     Dates: start: 20080423, end: 20080423

REACTIONS (7)
  - BLADDER IRRITATION [None]
  - FATIGUE [None]
  - INFLAMMATION [None]
  - POLYMERASE CHAIN REACTION [None]
  - PROSTATITIS [None]
  - PYREXIA [None]
  - TUBERCULOSIS [None]
